FAERS Safety Report 17143244 (Version 1)
Quarter: 2019Q4

REPORT INFORMATION
  Report Type: Spontaneous
  Country: US (occurrence: US)
  Receive Date: 20191212
  Receipt Date: 20191212
  Transmission Date: 20200122
  Serious: No
  Sender: FDA-Public Use
  Company Number: US-MYLANLABS-2019M1116502

PATIENT
  Sex: Female

DRUGS (1)
  1. FLURAZEPAM [Suspect]
     Active Substance: FLURAZEPAM HYDROCHLORIDE
     Indication: INSOMNIA
     Dosage: UNK
     Route: 048

REACTIONS (3)
  - Off label use [Recovered/Resolved]
  - Dizziness [Recovered/Resolved]
  - Incorrect product administration duration [Recovered/Resolved]
